FAERS Safety Report 6435885-0 (Version None)
Quarter: 2009Q4

REPORT INFORMATION
  Report Type: 
  Country: None (occurrence: None)
  Receive Date: 20091111
  Receipt Date: 20091110
  Transmission Date: 20100525
  Serious: Yes (Hospitalization)
  Sender: FDA-Public Use
  Company Number: FR-ROXANE LABORATORIES, INC.-2009-RO-01148RO

PATIENT
  Age: 46 Year
  Sex: Male

DRUGS (9)
  1. MYCOPHENOLATE MOFETIL [Suspect]
     Indication: UVEITIS
     Dosage: 2 G
  2. MYCOPHENOLATE MOFETIL [Suspect]
     Indication: BEHCET'S SYNDROME
  3. CORTICOSTEROIDS [Suspect]
     Indication: UVEITIS
     Route: 048
  4. INFLIXIMAB [Suspect]
     Indication: UVEITIS
     Dates: start: 20060101, end: 20070101
  5. INFLIXIMAB [Suspect]
     Indication: BEHCET'S SYNDROME
     Dates: start: 20070101
  6. INFLIXIMAB [Suspect]
  7. AMPHOTERICIN B [Concomitant]
     Indication: MENINGITIS CRYPTOCOCCAL
     Route: 042
  8. FLUCYTOSINE [Concomitant]
     Indication: MENINGITIS CRYPTOCOCCAL
     Route: 042
  9. FLUCONAZOLE [Concomitant]
     Indication: MENINGITIS CRYPTOCOCCAL
     Route: 048

REACTIONS (1)
  - MENINGITIS CRYPTOCOCCAL [None]
